FAERS Safety Report 6209844-7 (Version None)
Quarter: 2009Q2

REPORT INFORMATION
  Report Type: 
  Country: None (occurrence: None)
  Receive Date: 20090528
  Receipt Date: 20090528
  Transmission Date: 20091009
  Serious: Yes (Other)
  Sender: FDA-Public Use
  Company Number: None

PATIENT
  Sex: Male
  Weight: 64.8644 kg

DRUGS (1)
  1. BENAZEPRIL HYDROCHLORIDE [Suspect]
     Indication: HYPERTENSION
     Dosage: 5MG DAILY BY MOUTH
     Route: 048
     Dates: start: 20050820, end: 20050915

REACTIONS (5)
  - ABDOMINAL PAIN UPPER [None]
  - BLOOD PRESSURE INADEQUATELY CONTROLLED [None]
  - DIARRHOEA [None]
  - DRUG INEFFECTIVE [None]
  - NERVOUSNESS [None]
